FAERS Safety Report 6314454-7 (Version None)
Quarter: 2009Q3

REPORT INFORMATION
  Report Type: 
  Country: None (occurrence: None)
  Receive Date: 20090817
  Receipt Date: 20090817
  Transmission Date: 20100115
  Serious: Yes (Other)
  Sender: FDA-Public Use
  Company Number: None

PATIENT
  Age: 51 Year
  Sex: Female
  Weight: 200 kg

DRUGS (9)
  1. LEVAQUIN [Suspect]
     Indication: BRONCHITIS
     Dosage: 500MG 1 PER DAY PO
     Route: 048
     Dates: start: 20090526, end: 20090614
  2. NIFEDIPHINE PROCARDIA [Concomitant]
  3. COLCHICINE [Concomitant]
  4. SIMVASTATIN [Concomitant]
  5. ALLOPURINOL [Concomitant]
  6. HYDROCODONE VICADIN [Concomitant]
  7. CLONAZEPAM [Concomitant]
  8. PROMETHAZINE HCL [Concomitant]
  9. CODEINE PHOSPHATE SYRUP [Concomitant]

REACTIONS (7)
  - BRONCHITIS [None]
  - DISEASE RECURRENCE [None]
  - MUSCULOSKELETAL STIFFNESS [None]
  - PAIN [None]
  - SCAR [None]
  - SEPSIS [None]
  - SKIN DISCOLOURATION [None]
